FAERS Safety Report 6115261-0 (Version None)
Quarter: 2009Q1

REPORT INFORMATION
  Report Type: 
  Country: None (occurrence: None)
  Receive Date: 20090313
  Receipt Date: 20090303
  Transmission Date: 20090719
  Serious: Yes (Disabling)
  Sender: FDA-Public Use
  Company Number: FR-MERCK-0903FRA00012

PATIENT
  Age: 48 Year
  Sex: Female

DRUGS (12)
  1. EMEND [Suspect]
     Indication: PROPHYLAXIS OF NAUSEA AND VOMITING
     Route: 065
     Dates: start: 20080401, end: 20080626
  2. IXABEPILONE [Suspect]
     Indication: BREAST CANCER
     Route: 065
     Dates: start: 20080515, end: 20080626
  3. EPIRUBICIN HYDROCHLORIDE [Concomitant]
     Indication: BREAST CANCER
     Route: 065
     Dates: start: 20080314, end: 20080515
  4. CYCLOPHOSPHAMIDE [Concomitant]
     Indication: BREAST CANCER
     Route: 065
     Dates: start: 20080314, end: 20080515
  5. FLUOROURACIL [Concomitant]
     Indication: BREAST CANCER
     Route: 065
     Dates: start: 20080314, end: 20080515
  6. DEXCHLORPHENIRAMINE MALEATE [Concomitant]
     Indication: PREMEDICATION
     Route: 065
     Dates: start: 20080515, end: 20080626
  7. METHYLPREDNISOLONE SODIUM SUCCINATE [Concomitant]
     Indication: PREMEDICATION
     Route: 065
     Dates: start: 20080515, end: 20080626
  8. ONDANSETRON HYDROCHLORIDE [Concomitant]
     Indication: PREMEDICATION
     Route: 065
     Dates: start: 20080515, end: 20080626
  9. ACETAMINOPHEN AND PROPOXYPHENE HYDROCHLORIDE [Concomitant]
     Indication: ARTHRALGIA
     Route: 065
     Dates: start: 20080601
  10. ACETAMINOPHEN [Concomitant]
     Indication: ARTHRALGIA
     Route: 048
     Dates: start: 20080601
  11. TRAMADOL HYDROCHLORIDE [Concomitant]
     Indication: ARTHRALGIA
     Route: 065
     Dates: start: 20080828, end: 20080901
  12. GABAPENTIN [Concomitant]
     Indication: NEUROPATHY PERIPHERAL
     Route: 065
     Dates: start: 20080828, end: 20080929

REACTIONS (2)
  - ARTHRALGIA [None]
  - NEURALGIA [None]
